FAERS Safety Report 16071355 (Version 5)
Quarter: 2020Q1

REPORT INFORMATION
  Report Type: Spontaneous
  Country: US (occurrence: US)
  Receive Date: 20190314
  Receipt Date: 20200204
  Transmission Date: 20200409
  Serious: No
  Sender: FDA-Public Use
  Company Number: US-PFIZER INC-2019106148

PATIENT
  Age: 81 Year
  Sex: Female
  Weight: 61 kg

DRUGS (4)
  1. IBRANCE [Suspect]
     Active Substance: PALBOCICLIB
     Indication: BREAST CANCER FEMALE
     Dosage: 125 MG, CYCLIC (DAILY X 21 DAYS THEN 7 DAYS REST)
     Route: 048
     Dates: start: 2017
  2. IBRANCE [Suspect]
     Active Substance: PALBOCICLIB
     Dosage: 125 MG, CYCLIC (1 CAPSULE DAILY FOR 5 DAYS ON THEN 5 DAYS OFF ALTERNATING)
     Route: 048
     Dates: start: 20190206
  3. IBRANCE [Suspect]
     Active Substance: PALBOCICLIB
     Dosage: 125 MG, CYCLIC (1 CAPSULES DAILY X 5 DAYS THAN 5 DAYS OFF)
     Route: 048
     Dates: start: 2017
  4. IBRANCE [Suspect]
     Active Substance: PALBOCICLIB
     Dosage: 125 MG, CYCLIC  (CAPSULE DAILY FOR 21 DAYS Q28 DAYS)
     Route: 048
     Dates: end: 201902

REACTIONS (2)
  - White blood cell count decreased [Unknown]
  - Arthralgia [Recovered/Resolved]
